FAERS Safety Report 8358398-8 (Version None)
Quarter: 2012Q2

REPORT INFORMATION
  Report Type: 
  Country: None (occurrence: None)
  Receive Date: 20120514
  Receipt Date: 20111019
  Transmission Date: 20120825
  Serious: Yes (Hospitalization)
  Sender: FDA-Public Use
  Company Number: US-ALEXION-A201100621

PATIENT
  Sex: Female

DRUGS (18)
  1. METHOTREXATE [Concomitant]
     Dosage: 20 MG, QW
  2. TRAZODONE HCL [Concomitant]
     Dosage: UNK
  3. ULTRAM [Concomitant]
     Indication: FIBROMYALGIA
     Dosage: 100 MG, BID, PRN
  4. RITUXAN [Concomitant]
     Dosage: UNK, Q QUARTER
     Route: 042
  5. SOLIRIS [Suspect]
     Indication: PAROXYSMAL NOCTURNAL HAEMOGLOBINURIA
     Dosage: 600 MG, QW
     Route: 042
     Dates: start: 20100128, end: 20100301
  6. PREDNISONE [Concomitant]
     Dosage: 10 MG, QD
     Route: 048
  7. PLAQUENIL [Concomitant]
     Dosage: 200 MG, BID
  8. FOLIC ACID [Concomitant]
     Dosage: 1 MG, QD
  9. TYLENOL (CAPLET) [Concomitant]
     Dosage: UNK
  10. FERREX [Concomitant]
     Dosage: 150 MG, QD
  11. EFFEXOR XR [Concomitant]
     Dosage: 3.75 MG AND 7.5 MG, QD
  12. COLACE [Concomitant]
     Dosage: UNK
  13. SOLIRIS [Suspect]
     Dosage: 900 MG, Q2W
     Route: 042
     Dates: start: 20100301
  14. LEUCOVORIN CALCIUM [Concomitant]
     Dosage: 5 MG, 3 TIMES QWK
  15. CLONAZEPAM [Concomitant]
     Dosage: UNK
  16. METAMUCIL-2 [Concomitant]
     Dosage: UNK
  17. POTASSIUM CHLORIDE [Concomitant]
     Dosage: 60 MEQ, QD, PRN
  18. CALCIUM CARBONATE [Concomitant]
     Dosage: UNK

REACTIONS (12)
  - FATIGUE [None]
  - ASTHENIA [None]
  - INCONTINENCE [None]
  - FEMUR FRACTURE [None]
  - URINE OUTPUT INCREASED [None]
  - ARTHRITIS [None]
  - PLATELET COUNT DECREASED [None]
  - BLOOD LACTATE DEHYDROGENASE INCREASED [None]
  - HAEMOGLOBIN DECREASED [None]
  - HAEMOSIDEROSIS [None]
  - FALL [None]
  - SERUM FERRITIN INCREASED [None]
